FAERS Safety Report 25568733 (Version 1)
Quarter: 2025Q3

REPORT INFORMATION
  Report Type: Spontaneous
  Country: US (occurrence: US)
  Receive Date: 20250716
  Receipt Date: 20250716
  Transmission Date: 20251020
  Serious: No
  Sender: GALPHARM INTERNATIONAL
  Company Number: US-PERRIGO-25US001236

PATIENT

DRUGS (1)
  1. MINOXIDIL [Suspect]
     Active Substance: MINOXIDIL
     Indication: Product used for unknown indication
     Route: 061

REACTIONS (6)
  - Application site exfoliation [Unknown]
  - Application site exfoliation [Unknown]
  - Hypersensitivity [Unknown]
  - Neck pain [Unknown]
  - Alopecia [Unknown]
  - Application site irritation [Unknown]
